FAERS Safety Report 11914412 (Version 4)
Quarter: 2016Q4

REPORT INFORMATION
  Report Type: Report from Study
  Country: DE (occurrence: DE)
  Receive Date: 20160113
  Receipt Date: 20161123
  Transmission Date: 20170206
  Serious: Yes (Death, Hospitalization)
  Sender: FDA-Public Use
  Company Number: DE-INCYTE CORPORATION-2015IN006992

PATIENT
  Sex: Male
  Weight: 88 kg

DRUGS (3)
  1. INCB018424 [Suspect]
     Active Substance: RUXOLITINIB
     Dosage: 2 DF, QD (15 MG)
     Route: 048
     Dates: start: 20140417, end: 20140715
  2. INCB018424 [Suspect]
     Active Substance: RUXOLITINIB
     Indication: PRIMARY MYELOFIBROSIS
     Dosage: 2 DF, QD (20 MG)
     Route: 048
     Dates: start: 20131106, end: 20140416
  3. INCB018424 [Suspect]
     Active Substance: RUXOLITINIB
     Dosage: 4 DF, QD (5 MG)
     Route: 048
     Dates: start: 20140716

REACTIONS (3)
  - Tumour lysis syndrome [Fatal]
  - Pneumonia [Fatal]
  - Acute myeloid leukaemia [Fatal]

NARRATIVE: CASE EVENT DATE: 20151225
